FAERS Safety Report 11997665 (Version 1)
Quarter: 2016Q1

REPORT INFORMATION
  Report Type: Spontaneous
  Country: US (occurrence: US)
  Receive Date: 20160203
  Receipt Date: 20160203
  Transmission Date: 20160526
  Serious: No
  Sender: FDA-Public Use
  Company Number: US-ANACOR-2015ANA00207

PATIENT
  Age: 65 Year
  Sex: Female
  Weight: 57.14 kg

DRUGS (2)
  1. KERYDIN [Suspect]
     Active Substance: TAVABOROLE
     Indication: ONYCHOMYCOSIS
     Dosage: UNK UNK, ONCE
     Route: 061
     Dates: start: 201511, end: 201511
  2. LIALDA [Concomitant]
     Active Substance: MESALAMINE

REACTIONS (5)
  - Application site exfoliation [Recovered/Resolved]
  - Application site vesicles [Recovered/Resolved]
  - Drug administered at inappropriate site [Recovered/Resolved]
  - Application site erythema [Recovered/Resolved]
  - Application site pain [Recovered/Resolved]

NARRATIVE: CASE EVENT DATE: 201511
